FAERS Safety Report 10904711 (Version 1)
Quarter: 2015Q1

REPORT INFORMATION
  Report Type: Spontaneous
  Country: DE (occurrence: DE)
  Receive Date: 20150311
  Receipt Date: 20150311
  Transmission Date: 20150721
  Serious: Yes (Other)
  Sender: FDA-Public Use
  Company Number: DE-SHIRE-DE201501908

PATIENT
  Age: 3 Decade
  Sex: Female

DRUGS (1)
  1. ELVANSE [Suspect]
     Active Substance: LISDEXAMFETAMINE DIMESYLATE
     Indication: PRODUCT USED FOR UNKNOWN INDICATION
     Dosage: 70 MG, UNKNOWN
     Route: 048
     Dates: start: 201406

REACTIONS (2)
  - Bundle branch block right [Unknown]
  - Palpitations [Unknown]

NARRATIVE: CASE EVENT DATE: 2015
